FAERS Safety Report 7118423-9 (Version None)
Quarter: 2010Q4

REPORT INFORMATION
  Report Type: 
  Country: None (occurrence: None)
  Receive Date: 20101123
  Receipt Date: 20101115
  Transmission Date: 20110411
  Serious: No
  Sender: FDA-Public Use
  Company Number: CA-ELI_LILLY_AND_COMPANY-CA201007007735

PATIENT
  Age: 71 Year
  Sex: Male

DRUGS (8)
  1. CIALIS [Suspect]
     Indication: ERECTILE DYSFUNCTION
     Dosage: 20 MG, AS NEEDED
     Dates: start: 20100719
  2. CIALIS [Suspect]
     Dosage: 10 MG, UNK
  3. RAMIPRIL [Concomitant]
     Dosage: 10 MG, UNK
  4. SIMVASTATIN [Concomitant]
  5. METFORMIN HCL [Concomitant]
     Dosage: 500 MG, UNK
  6. ATROVENT [Concomitant]
     Dosage: UNK, AS NEEDED
  7. VENTOLIN                                /SCH/ [Concomitant]
  8. QVAR 40 [Concomitant]

REACTIONS (5)
  - FEELING HOT [None]
  - FLUSHING [None]
  - GENERALISED ERYTHEMA [None]
  - LIBIDO INCREASED [None]
  - VISUAL IMPAIRMENT [None]
